FAERS Safety Report 9016402 (Version 3)
Quarter: 2014Q2

REPORT INFORMATION
  Report Type: Spontaneous
  Country: US (occurrence: US)
  Receive Date: 20130116
  Receipt Date: 20140523
  Transmission Date: 20141212
  Serious: Yes (Hospitalization)
  Sender: FDA-Public Use
  Company Number: US-GLAXOSMITHKLINE-A0874421A

PATIENT
  Age: 75 Year
  Sex: Female

DRUGS (11)
  1. FLONASE [Suspect]
     Indication: RHINITIS
     Dosage: 1SPR TWICE PER DAY
     Route: 045
     Dates: start: 20060517
  2. GLUCOTROL [Concomitant]
  3. NEPHRO-VITE [Concomitant]
  4. ALLOPURINOL [Concomitant]
  5. VYTORIN [Concomitant]
  6. NORVASC [Concomitant]
  7. FUROSEMIDE [Concomitant]
  8. DIOVAN [Concomitant]
  9. ACIPHEX [Concomitant]
  10. SYSTANE [Concomitant]
  11. LABETALOL HCL [Concomitant]

REACTIONS (9)
  - Otorrhoea [Unknown]
  - Limb operation [Unknown]
  - Arteriovenous fistula operation [Unknown]
  - Laryngitis [Recovered/Resolved]
  - Influenza [Recovered/Resolved]
  - Malaise [Unknown]
  - Oropharyngeal pain [Unknown]
  - Drug dose omission [Unknown]
  - Therapeutic response changed [Unknown]
